FAERS Safety Report 6539079-X (Version None)
Quarter: 2010Q1

REPORT INFORMATION
  Report Type: 
  Country: None (occurrence: None)
  Receive Date: 20100115
  Receipt Date: 20100107
  Transmission Date: 20100710
  Serious: Yes (Other)
  Sender: FDA-Public Use
  Company Number: PHHY2009FR51011

PATIENT
  Sex: Male

DRUGS (13)
  1. TRILEPTAL [Suspect]
     Indication: PELVIC PAIN
     Dosage: 150 MG DAILY
     Route: 048
     Dates: start: 20091110, end: 20091116
  2. TRILEPTAL [Suspect]
     Indication: PAIN IN EXTREMITY
  3. RHINOFLUIMUCIL [Suspect]
     Indication: RHINITIS
     Dosage: UNK
     Dates: start: 20091112, end: 20091116
  4. FLUORESCEIN [Suspect]
     Indication: ANGIOGRAM
     Dosage: UNK
     Dates: start: 20091110
  5. HEXASPRAY [Concomitant]
  6. RHINOCORT [Concomitant]
  7. ATENOLOL [Concomitant]
     Indication: ANGINA PECTORIS
     Dosage: 100 MG, QD2SDO
     Dates: start: 20041001
  8. ATENOLOL [Concomitant]
     Indication: HYPERTENSION
  9. KARDEGIC [Concomitant]
     Indication: ANGINA PECTORIS
     Dosage: 75 MG, QD
     Dates: start: 20040101
  10. TRINITRINE [Concomitant]
     Indication: ANGINA PECTORIS
     Dosage: 10 MG
     Dates: start: 20060101
  11. AMILORIDE HYDROCHLORIDE [Concomitant]
     Indication: HYPERTENSION
     Dosage: 1 DF DAILY
     Dates: start: 20081201
  12. OMEPRAZOLE [Concomitant]
     Indication: GASTROOESOPHAGEAL REFLUX DISEASE
     Dosage: 20 MG, QD
     Dates: start: 20040101
  13. ZOPICLONE [Concomitant]
     Indication: INSOMNIA
     Dosage: 1 DF DAILY
     Dates: start: 20070301

REACTIONS (3)
  - FREQUENT BOWEL MOVEMENTS [None]
  - HYPERHIDROSIS [None]
  - URINE OUTPUT DECREASED [None]
